FAERS Safety Report 6731444-0 (Version None)
Quarter: 2010Q2

REPORT INFORMATION
  Report Type: 
  Country: None (occurrence: None)
  Receive Date: 20100518
  Receipt Date: 20100518
  Transmission Date: 20101027
  Serious: Yes (Hospitalization, Other)
  Sender: FDA-Public Use
  Company Number: None

PATIENT
  Sex: Female
  Weight: 59.8748 kg

DRUGS (8)
  1. PEGASYS [Suspect]
     Indication: HEPATITIS C
     Dosage: 180MCG/0.5 ML PFS 4X0.5 ML PK WEEKLY SQ
     Route: 058
     Dates: start: 20100506
  2. RIBAPAK 400/400 MG TAB 56DSM [Suspect]
     Indication: HEPATITIS C
     Dosage: 400/400 MG TAB 56 DAILY PO
     Route: 048
     Dates: start: 20100506
  3. CHLORDIAZEPOXIDE [Concomitant]
  4. METAMUCIL-2 [Concomitant]
  5. NEXIUM [Concomitant]
  6. LEVOTHYROXINE SODIUM [Concomitant]
  7. SOMA [Concomitant]
  8. IBUPROFEN [Concomitant]

REACTIONS (6)
  - CONTUSION [None]
  - DYSURIA [None]
  - SWELLING [None]
  - THROMBOCYTOPENIA [None]
  - URETHRAL DISORDER [None]
  - URETHRAL PAIN [None]
